FAERS Safety Report 4435799-1 (Version None)
Quarter: 2004Q3

REPORT INFORMATION
  Report Type: 
  Country: None (occurrence: None)
  Receive Date: 20040726
  Receipt Date: 20040414
  Transmission Date: 20050211
  Serious: No
  Sender: FDA-Public Use
  Company Number: USA040465039

PATIENT
  Age: 69 Year
  Sex: Female

DRUGS (7)
  1. FORTEO [Suspect]
     Indication: OSTEOPOROSIS
     Dosage: 20 UG DAY
     Dates: start: 20040201
  2. DARVOCET-N 100 [Concomitant]
  3. LORTAB [Concomitant]
  4. LIBRAX [Concomitant]
  5. MIRALAX [Concomitant]
  6. NORVASC [Concomitant]
  7. VITAMINE B 12 [Concomitant]

REACTIONS (1)
  - ABDOMINAL PAIN [None]
